FAERS Safety Report 19010831 (Version 3)
Quarter: 2024Q1

REPORT INFORMATION
  Report Type: Other
  Country: US (occurrence: None)
  Receive Date: 20210315
  Receipt Date: 20240318
  Transmission Date: 20240409
  Serious: Yes (Other)
  Sender: FDA-Public Use
  Company Number: US-ROCHE-2786073

PATIENT

DRUGS (8)
  1. RITUXIMAB [Suspect]
     Active Substance: RITUXIMAB
     Indication: B-cell lymphoma
     Dosage: ON DAYS 1,8,15,21 FOR CYCLE 1, ONCE EVERY 28 DAYS FOR CYCLES 2-6 AND THEN ONCE EVERY 2 MONTHS FOR CY
     Route: 042
  2. RITUXIMAB [Suspect]
     Active Substance: RITUXIMAB
     Indication: Follicular lymphoma
  3. IXAZOMIB [Suspect]
     Active Substance: IXAZOMIB
     Indication: B-cell lymphoma
     Dosage: 2 MG (N=3), 3 MG (N=3) OR 4 MG (N=12) ON DAYS 1, 8, AND 15
     Route: 048
  4. IXAZOMIB [Suspect]
     Active Substance: IXAZOMIB
     Indication: Follicular lymphoma
  5. LENALIDOMIDE [Suspect]
     Active Substance: LENALIDOMIDE
     Indication: B-cell lymphoma
     Dosage: ON DAYS 1-21
     Route: 048
  6. LENALIDOMIDE [Suspect]
     Active Substance: LENALIDOMIDE
     Indication: Follicular lymphoma
  7. ACYCLOVIR [Concomitant]
     Active Substance: ACYCLOVIR
  8. ASPIRIN [Concomitant]
     Active Substance: ASPIRIN
     Indication: Thrombosis prophylaxis

REACTIONS (48)
  - Neutropenia [Unknown]
  - Blood creatinine increased [Unknown]
  - Deep vein thrombosis [Unknown]
  - Pulmonary embolism [Unknown]
  - Thrombocytopenia [Unknown]
  - Diarrhoea [Unknown]
  - Rash [Unknown]
  - Pneumonia legionella [Unknown]
  - Upper respiratory tract infection [Unknown]
  - Syncope [Unknown]
  - Alanine aminotransferase increased [Unknown]
  - Hyperuricaemia [Unknown]
  - Anaemia [Unknown]
  - Abdominal distension [Unknown]
  - Muscle spasms [Unknown]
  - Abdominal pain [Unknown]
  - Decreased appetite [Unknown]
  - Nausea [Unknown]
  - Vomiting [Unknown]
  - Dysgeusia [Unknown]
  - Dyspepsia [Unknown]
  - Dysphagia [Unknown]
  - Constipation [Unknown]
  - Dizziness [Unknown]
  - Fatigue [Unknown]
  - Pleuritic pain [Unknown]
  - Hypertension [Unknown]
  - Pruritus [Unknown]
  - Petechiae [Unknown]
  - Vision blurred [Unknown]
  - Insomnia [Unknown]
  - Neuropathy peripheral [Unknown]
  - Gait disturbance [Unknown]
  - Amnesia [Unknown]
  - Headache [Unknown]
  - Joint swelling [Unknown]
  - Arthralgia [Unknown]
  - Musculoskeletal chest pain [Unknown]
  - Back pain [Unknown]
  - Myalgia [Unknown]
  - Sinusitis [Unknown]
  - Pyrexia [Unknown]
  - Thrombophlebitis [Unknown]
  - Cellulitis [Unknown]
  - Blood bilirubin increased [Unknown]
  - Blood alkaline phosphatase increased [Unknown]
  - Dehydration [Unknown]
  - Infusion related reaction [Unknown]
